FAERS Safety Report 11589865 (Version 1)
Quarter: 2015Q4

REPORT INFORMATION
  Report Type: Spontaneous
  Country: SI (occurrence: SI)
  Receive Date: 20151002
  Receipt Date: 20151002
  Transmission Date: 20160304
  Serious: Yes (Other)
  Sender: FDA-Public Use
  Company Number: PHHY2015SI114195

PATIENT
  Sex: Male

DRUGS (7)
  1. AFINITOR [Suspect]
     Active Substance: EVEROLIMUS
     Dosage: UNK
     Route: 048
     Dates: end: 201503
  2. AFINITOR [Suspect]
     Active Substance: EVEROLIMUS
     Indication: METASTATIC RENAL CELL CARCINOMA
     Dosage: 10 MG, QD
     Route: 048
     Dates: start: 201401
  3. AFINITOR [Suspect]
     Active Substance: EVEROLIMUS
     Dosage: 10 MG, UNK
     Route: 048
     Dates: start: 201403
  4. MEDROL [Concomitant]
     Active Substance: METHYLPREDNISOLONE
     Indication: PRODUCT USED FOR UNKNOWN INDICATION
     Dosage: 32 OT, UNK
     Route: 065
  5. MEDROL [Concomitant]
     Active Substance: METHYLPREDNISOLONE
     Dosage: 16 MG, UNK
  6. NEXAVAR [Concomitant]
     Active Substance: SORAFENIB
     Indication: PRODUCT USED FOR UNKNOWN INDICATION
     Dosage: 400X2
  7. MEDROL [Concomitant]
     Active Substance: METHYLPREDNISOLONE
     Dosage: 4 MG, UNK
     Route: 065

REACTIONS (20)
  - Herpes zoster [Unknown]
  - Dermatitis acneiform [Unknown]
  - Dyspnoea [Unknown]
  - Pruritus [Unknown]
  - Blood creatinine increased [Unknown]
  - C-reactive protein decreased [Unknown]
  - Rash [Unknown]
  - Pleural effusion [Unknown]
  - Malignant neoplasm progression [Unknown]
  - Proteinuria [Unknown]
  - Interstitial lung disease [Unknown]
  - Alanine aminotransferase increased [Unknown]
  - Cough [Unknown]
  - Aspartate aminotransferase increased [Unknown]
  - Body temperature increased [Recovered/Resolved]
  - Oedema peripheral [Unknown]
  - Osteoporotic fracture [Unknown]
  - Fibrosis [Unknown]
  - Urinary nitrogen increased [Unknown]
  - Lung infiltration [Unknown]

NARRATIVE: CASE EVENT DATE: 201401
